FAERS Safety Report 24929544 (Version 1)
Quarter: 2025Q1

REPORT INFORMATION
  Report Type: Spontaneous
  Country: US (occurrence: US)
  Receive Date: 20250205
  Receipt Date: 20250205
  Transmission Date: 20250409
  Serious: No
  Sender: SANOFI AVENTIS
  Company Number: US-SA-2025SA033798

PATIENT
  Age: 70 Year
  Sex: Female
  Weight: 147.27 kg

DRUGS (17)
  1. DUPIXENT [Suspect]
     Active Substance: DUPILUMAB
     Dosage: 200 MG, QOW
     Route: 058
  2. WEGOVY [Suspect]
     Active Substance: SEMAGLUTIDE
  3. PROMETHAZINE DM [Concomitant]
     Active Substance: DEXTROMETHORPHAN HYDROBROMIDE\PROMETHAZINE HYDROCHLORIDE
  4. CARVEDILOL [Concomitant]
     Active Substance: CARVEDILOL
  5. NAPROXEN [Concomitant]
     Active Substance: NAPROXEN
  6. PREDNISONE [Concomitant]
     Active Substance: PREDNISONE
  7. LEVALBUTEROL [Concomitant]
     Active Substance: LEVALBUTEROL
  8. FLUTICASONE PROPIONATE [Concomitant]
     Active Substance: FLUTICASONE PROPIONATE
  9. SPIRIVA RESPIMAT [Concomitant]
     Active Substance: TIOTROPIUM BROMIDE
  10. ACETAMINOPHEN\HYDROCODONE [Concomitant]
     Active Substance: ACETAMINOPHEN\HYDROCODONE
  11. DULOXETINE [Concomitant]
     Active Substance: DULOXETINE
  12. TRAZODONE [Concomitant]
     Active Substance: TRAZODONE HYDROCHLORIDE
  13. ATORVASTATIN CALCIUM [Concomitant]
     Active Substance: ATORVASTATIN CALCIUM
  14. MONTELUKAST SODIUM [Concomitant]
     Active Substance: MONTELUKAST SODIUM
  15. BUDESONIDE\FORMOTEROL [Concomitant]
     Active Substance: BUDESONIDE\FORMOTEROL
  16. LEVOFLOXACIN [Concomitant]
     Active Substance: LEVOFLOXACIN
  17. HYDROCHLOROTHIAZIDE\LOSARTAN [Concomitant]
     Active Substance: HYDROCHLOROTHIAZIDE\LOSARTAN

REACTIONS (1)
  - Feeling abnormal [Unknown]
